FAERS Safety Report 6830028-3 (Version None)
Quarter: 2010Q3

REPORT INFORMATION
  Report Type: 
  Country: None (occurrence: None)
  Receive Date: 20100711
  Receipt Date: 20100428
  Transmission Date: 20110219
  Serious: No
  Sender: FDA-Public Use
  Company Number: US-ALLERGAN-1005559US

PATIENT
  Age: 46 Year
  Sex: Female

DRUGS (4)
  1. LATISSE [Suspect]
     Indication: GROWTH OF EYELASHES
     Dosage: 1 GTT, QHS
     Route: 061
  2. ALMAY EYE MAKE-UP REMOVER PADS [Suspect]
     Indication: REMOVAL OF INERT MATTER FROM SKIN OR SUBCUTANEOUS TISSUE
  3. HORMONE REPLACEMENT THERAPY [Concomitant]
     Indication: HYSTERECTOMY
     Dosage: UNK
  4. ANTI-DEPRESSANT NOS [Concomitant]
     Indication: DEPRESSION
     Dosage: UNK

REACTIONS (2)
  - DRUG INEFFECTIVE [None]
  - DRUG INTERACTION [None]
